FAERS Safety Report 8573026-4 (Version None)
Quarter: 2012Q3

REPORT INFORMATION
  Report Type: 
  Country: None (occurrence: None)
  Receive Date: 20120806
  Receipt Date: 20120709
  Transmission Date: 20120928
  Serious: No
  Sender: FDA-Public Use
  Company Number: US-ASTRAZENECA-2011SE54324

PATIENT
  Age: 60 Year
  Sex: Female

DRUGS (1)
  1. NEXIUM [Suspect]
     Route: 048

REACTIONS (6)
  - REGURGITATION [None]
  - INSOMNIA [None]
  - MALAISE [None]
  - MULTIPLE ALLERGIES [None]
  - DRUG DOSE OMISSION [None]
  - DYSPNOEA [None]
